FAERS Safety Report 19386407 (Version 1)
Quarter: 2021Q2

REPORT INFORMATION
  Report Type: Spontaneous
  Country: US (occurrence: US)
  Receive Date: 20210607
  Receipt Date: 20210607
  Transmission Date: 20210717
  Serious: No
  Sender: FDA-Public Use
  Company Number: US-GALDERMA-US2021010847

PATIENT
  Age: 39 Year
  Sex: Male

DRUGS (5)
  1. PROACTIV MD ULTRA HYDRATING MOISTURIZER [Concomitant]
     Indication: PIGMENTATION DISORDER
     Route: 061
     Dates: start: 20210501, end: 20210504
  2. MULTIVITAMINS [Concomitant]
     Active Substance: VITAMINS
     Indication: PRODUCT USED FOR UNKNOWN INDICATION
     Route: 065
  3. PROACTIV PORE PURIFYING NOSE STRIP [Concomitant]
     Indication: PIGMENTATION DISORDER
     Route: 061
     Dates: start: 20210501, end: 20210504
  4. PROACTIV MD ULTRA GENTLE CLEANSER [Concomitant]
     Indication: PIGMENTATION DISORDER
     Route: 061
     Dates: start: 20210501, end: 20210504
  5. PROACTIV MD ADAPALENE ACNE TREATMENT [Suspect]
     Active Substance: ADAPALENE
     Indication: PIGMENTATION DISORDER
     Dosage: 0.1%
     Route: 061
     Dates: start: 20210501, end: 20210504

REACTIONS (5)
  - Skin swelling [Not Recovered/Not Resolved]
  - Product use in unapproved indication [Recovered/Resolved]
  - Skin burning sensation [Not Recovered/Not Resolved]
  - Rash [Not Recovered/Not Resolved]
  - Pruritus [Not Recovered/Not Resolved]

NARRATIVE: CASE EVENT DATE: 20210501
